FAERS Safety Report 9421304 (Version 2)
Quarter: 2013Q3

REPORT INFORMATION
  Report Type: Report from Study
  Country: DE (occurrence: DE)
  Receive Date: 20130725
  Receipt Date: 20130730
  Transmission Date: 20140515
  Serious: Yes (Hospitalization, Other)
  Sender: FDA-Public Use
  Company Number: DE-ASTRAZENECA-2013SE34711

PATIENT
  Age: 28811 Day
  Sex: Male

DRUGS (13)
  1. AZD6140 [Suspect]
     Indication: CORONARY ARTERY DISEASE
     Route: 048
     Dates: start: 20110609, end: 20121214
  2. AZD6140 [Suspect]
     Indication: CORONARY ARTERY DISEASE
     Route: 048
     Dates: start: 20121224, end: 20130225
  3. AZD6140 [Suspect]
     Indication: CORONARY ARTERY DISEASE
     Route: 048
     Dates: start: 20130317, end: 20130502
  4. ASA [Suspect]
     Route: 048
     Dates: end: 20120502
  5. ASA [Suspect]
     Route: 048
     Dates: start: 20130525
  6. RAMIPRIL [Concomitant]
     Indication: ACUTE MYOCARDIAL INFARCTION
     Route: 048
     Dates: end: 20130521
  7. BISOPROLOL [Concomitant]
     Indication: HYPERTENSION
     Route: 048
  8. RANITIDIN [Concomitant]
     Indication: DYSPEPSIA
     Route: 048
     Dates: end: 20130430
  9. SIMVASTATIN [Concomitant]
     Indication: HYPERLIPIDAEMIA
     Route: 048
  10. ALLOPURINOL [Concomitant]
     Indication: GOUT
     Route: 048
  11. PROSTACURE [Concomitant]
     Indication: BENIGN PROSTATIC HYPERPLASIA
     Route: 048
  12. TRENANTONE [Concomitant]
     Indication: PROSTATE CANCER
     Route: 058
     Dates: start: 20130409
  13. HEPARIN [Concomitant]
     Indication: THROMBOSIS PROPHYLAXIS
     Route: 058
     Dates: start: 20130502

REACTIONS (3)
  - Erosive oesophagitis [Recovered/Resolved]
  - Thermal burn [Not Recovered/Not Resolved]
  - Post procedural haemorrhage [Recovered/Resolved]
